FAERS Safety Report 20980554 (Version 3)
Quarter: 2022Q4

REPORT INFORMATION
  Report Type: Report from Study
  Country: US (occurrence: US)
  Receive Date: 20220620
  Receipt Date: 20221108
  Transmission Date: 20230113
  Serious: Yes (Other)
  Sender: FDA-Public Use
  Company Number: US-NOVARTISPH-NVSC2022US137783

PATIENT
  Sex: Female

DRUGS (1)
  1. ENTRESTO [Suspect]
     Active Substance: SACUBITRIL\VALSARTAN
     Indication: Cardiac failure
     Dosage: UNK, BID
     Route: 048
     Dates: start: 20220610

REACTIONS (6)
  - Diabetes mellitus [Unknown]
  - Laziness [Unknown]
  - Blood glucose decreased [Unknown]
  - Fatigue [Unknown]
  - Headache [Recovering/Resolving]
  - Adverse drug reaction [Unknown]
